FAERS Safety Report 8029221-6 (Version None)
Quarter: 2012Q1

REPORT INFORMATION
  Report Type: 
  Country: None (occurrence: None)
  Receive Date: 20120106
  Receipt Date: 20111223
  Transmission Date: 20120608
  Serious: Yes (Hospitalization)
  Sender: FDA-Public Use
  Company Number: PT-CELGENEUS-144-50794-11123291

PATIENT
  Sex: Male

DRUGS (4)
  1. NEUPOGEN [Concomitant]
     Indication: NEUTROPENIA
     Dosage: 48 MILLIGRAM
     Route: 065
     Dates: start: 20100706, end: 20110207
  2. ITRACONAZOLE [Concomitant]
     Indication: ANTIFUNGAL PROPHYLAXIS
     Dosage: 150 MILLIGRAM
     Route: 065
     Dates: start: 20100630, end: 20110207
  3. ONDANSETRON [Concomitant]
     Indication: ANTIEMETIC SUPPORTIVE CARE
     Dosage: 8 MILLIGRAM
     Route: 065
     Dates: start: 20100629, end: 20110207
  4. VIDAZA [Suspect]
     Dosage: 144 MILLIGRAM
     Route: 041
     Dates: start: 20100629, end: 20110207

REACTIONS (4)
  - ABDOMINAL DISTENSION [None]
  - OEDEMA [None]
  - ASTHENIA [None]
  - BACTERAEMIA [None]
